FAERS Safety Report 23387201 (Version 3)
Quarter: 2024Q1

REPORT INFORMATION
  Report Type: Spontaneous
  Country: PT (occurrence: PT)
  Receive Date: 20240110
  Receipt Date: 20240220
  Transmission Date: 20240409
  Serious: Yes (Other)
  Sender: FDA-Public Use
  Company Number: PT-009507513-2401PRT001110

PATIENT
  Age: 80 Year
  Sex: Male

DRUGS (1)
  1. ERTAPENEM SODIUM [Suspect]
     Active Substance: ERTAPENEM SODIUM
     Indication: Anti-infective therapy
     Dosage: UNK
     Dates: start: 20231117

REACTIONS (4)
  - Intervertebral discitis [Unknown]
  - Disease complication [Unknown]
  - Bacteraemia [Unknown]
  - Bursa removal [Unknown]

NARRATIVE: CASE EVENT DATE: 20230101
